FAERS Safety Report 6264786-6 (Version None)
Quarter: 2009Q3

REPORT INFORMATION
  Report Type: 
  Country: None (occurrence: None)
  Receive Date: 20090710
  Receipt Date: 20090706
  Transmission Date: 20100115
  Serious: Yes (Death)
  Sender: FDA-Public Use
  Company Number: AU-BRISTOL-MYERS SQUIBB COMPANY-14692768

PATIENT

DRUGS (1)
  1. KARVEZIDE [Suspect]
     Dosage: 1 DF= 300MG/25MG

REACTIONS (1)
  - DEATH [None]
